FAERS Safety Report 21519600 (Version 1)
Quarter: 2022Q4

REPORT INFORMATION
  Report Type: Spontaneous
  Country: US (occurrence: US)
  Receive Date: 20221028
  Receipt Date: 20221028
  Transmission Date: 20230113
  Serious: Yes (Life-Threatening, Hospitalization)
  Sender: FDA-Public Use
  Company Number: US-MYLANLABS-2022M1118342

PATIENT
  Age: 73 Year
  Sex: Male

DRUGS (2)
  1. DILTIAZEM [Suspect]
     Active Substance: DILTIAZEM
     Indication: Atrial flutter
     Dosage: UNK, DRIP
     Route: 065
  2. METOPROLOL [Suspect]
     Active Substance: METOPROLOL
     Indication: Atrial flutter
     Dosage: 10 MILLIGRAM, 2X, TWICE
     Route: 042

REACTIONS (4)
  - Cardiogenic shock [Recovering/Resolving]
  - Pulseless electrical activity [Recovered/Resolved]
  - Pulmonary oedema [Unknown]
  - Drug ineffective [Unknown]
